FAERS Safety Report 13052921 (Version 1)
Quarter: 2016Q4

REPORT INFORMATION
  Report Type: Other
  Country: US (occurrence: US)
  Receive Date: 20161222
  Receipt Date: 20161222
  Transmission Date: 20170207
  Serious: Yes (Hospitalization)
  Sender: FDA-Public Use
  Company Number: US-NOVEL LABORATORIES, INC-2016-05609

PATIENT
  Age: 58 Year
  Sex: Male

DRUGS (2)
  1. OXYCODONE [Suspect]
     Active Substance: OXYCODONE
     Indication: PAIN
     Route: 065
  2. OXYCODONE [Suspect]
     Active Substance: OXYCODONE
     Route: 065

REACTIONS (1)
  - Interstitial lung disease [Recovering/Resolving]
